FAERS Safety Report 9591354 (Version 2)
Quarter: 2013Q4

REPORT INFORMATION
  Report Type: Spontaneous
  Country: US (occurrence: US)
  Receive Date: 20131003
  Receipt Date: 20131003
  Transmission Date: 20140711
  Serious: No
  Sender: FDA-Public Use
  Company Number: US-AMGEN-USASP2012077764

PATIENT
  Age: 53 Year
  Sex: Female
  Weight: 58.96 kg

DRUGS (5)
  1. ENBREL [Suspect]
     Indication: PRODUCT USED FOR UNKNOWN INDICATION
     Dosage: 50 MG, QWK
     Route: 058
  2. ZOLOFT [Concomitant]
     Dosage: 100 MG, UNK
  3. ALBUTEROL                          /00139501/ [Concomitant]
     Dosage: 90 MUG, UNK
  4. TRAMADOL HCL [Concomitant]
     Dosage: 100 MG, ER UNK
  5. COQ-10 [Concomitant]
     Dosage: 10 MG, UNK

REACTIONS (9)
  - Nausea [Unknown]
  - Inflammation [Unknown]
  - Limb discomfort [Unknown]
  - Feeling hot [Unknown]
  - Local swelling [Unknown]
  - Pain in extremity [Unknown]
  - Fatigue [Unknown]
  - Pain [Unknown]
  - Injection site reaction [Unknown]
